FAERS Safety Report 8028115-X (Version None)
Quarter: 2011Q4

REPORT INFORMATION
  Report Type: 
  Country: None (occurrence: None)
  Receive Date: 20111130
  Receipt Date: 20110622
  Transmission Date: 20120403
  Serious: Yes (Hospitalization, Other)
  Sender: FDA-Public Use
  Company Number: US200908005976

PATIENT
  Age: 59 Year
  Sex: Male
  Weight: 134.7 kg

DRUGS (22)
  1. EXENATIDE 10MCG PEN, DISPOSABLE DEVCIE (EXENATIDE PEN (10MCG)) PEN,DIS [Concomitant]
  2. ZOCOR [Concomitant]
  3. PLAVIX [Concomitant]
  4. GLUCOPHAGE [Concomitant]
  5. COUMADIN [Concomitant]
  6. RELAFEN [Concomitant]
  7. BYETTA [Suspect]
     Dosage: 10 UG, 2/D
     Dates: start: 20060501, end: 20061001
  8. LASIX [Concomitant]
  9. GLYBURIDE [Concomitant]
  10. POTASSIUM CHLORIDE [Concomitant]
  11. LANTUS [Concomitant]
  12. ACTOS [Concomitant]
  13. ATENOLOL [Concomitant]
  14. ZOLOFT [Concomitant]
  15. INSULIN [Concomitant]
  16. METFORMIN HCL [Concomitant]
  17. NORVASC [Concomitant]
  18. HUMALOG [Concomitant]
  19. LYRICA [Concomitant]
  20. NIASPAN [Concomitant]
  21. FUROSEMIDE [Concomitant]
  22. ZAROXOLYN [Concomitant]

REACTIONS (2)
  - PANCREATITIS ACUTE [None]
  - OFF LABEL USE [None]
